FAERS Safety Report 9104400 (Version 2)
Quarter: 2013Q2

REPORT INFORMATION
  Report Type: Spontaneous
  Country: IT (occurrence: IT)
  Receive Date: 20130220
  Receipt Date: 20130404
  Transmission Date: 20140414
  Serious: Yes (Hospitalization)
  Sender: FDA-Public Use
  Company Number: PHHY2013IT015083

PATIENT
  Age: 56 Year
  Sex: Male

DRUGS (2)
  1. SIMVASTATIN [Suspect]
     Indication: HYPERCHOLESTEROLAEMIA
     Dosage: 10 MG, PER DAY
  2. PYRIDOSTIGMINE [Concomitant]
     Indication: MYASTHENIA GRAVIS

REACTIONS (10)
  - Myasthenia gravis [Recovering/Resolving]
  - Muscular weakness [Recovering/Resolving]
  - Acute respiratory failure [Recovering/Resolving]
  - Respiratory failure [Recovering/Resolving]
  - Bronchostenosis [Recovering/Resolving]
  - Cough [Recovering/Resolving]
  - Dyspnoea [Recovering/Resolving]
  - Hypoxia [Recovering/Resolving]
  - Respiratory acidosis [Recovering/Resolving]
  - Pyrexia [Recovering/Resolving]
